FAERS Safety Report 17425924 (Version 1)
Quarter: 2020Q1

REPORT INFORMATION
  Report Type: Spontaneous
  Country: JP (occurrence: JP)
  Receive Date: 20200217
  Receipt Date: 20200217
  Transmission Date: 20200409
  Serious: Yes (Other)
  Sender: FDA-Public Use
  Company Number: JP-BAYER-2019-142236

PATIENT
  Age: 32 Year
  Sex: Male

DRUGS (9)
  1. FOSRENOL 250 MG [Concomitant]
     Dosage: 500 MG, BID
     Route: 048
     Dates: start: 20170325
  2. BISOPROLOL FUMARATE. [Concomitant]
     Active Substance: BISOPROLOL FUMARATE
     Indication: ATRIAL FIBRILLATION
     Dosage: DAILY DOSE 5 MG (AFTER BREAKFAST),
     Route: 048
     Dates: start: 20180612
  3. OXAROL [Concomitant]
     Active Substance: MAXACALCITOL
     Indication: HYPERPARATHYROIDISM SECONDARY
     Dosage: DAILY DOSE 2.5 MG
     Route: 042
     Dates: start: 20170112
  4. IOPROMIDE. [Suspect]
     Active Substance: IOPROMIDE
     Indication: SCAN WITH CONTRAST
     Dosage: 80 ML, ONCE
     Route: 042
     Dates: start: 20190330, end: 20190330
  5. P-TOL [SUCROFERRIC OXYHYDROXIDE] [Concomitant]
     Indication: HYPERPHOSPHATAEMIA
     Dosage: 500 MG, TID (IMMEDIATELY BEFORE BREAKFAST , LUNCH AND DENNER)
     Dates: start: 20190221
  6. ZOLPIDEM TARTRATE. [Concomitant]
     Active Substance: ZOLPIDEM TARTRATE
     Indication: INSOMNIA
     Dosage: DAILY DOSE 5 MG (AT BEDTIME),
     Route: 048
     Dates: start: 20180315
  7. AMEZINIUM METILSULFATE [Concomitant]
     Active Substance: AMEZINIUM METILSULFATE
     Indication: PROCEDURAL HYPOTENSION
     Dosage: DAILY DOSE 10 MG (ONLY TAKE ON DIALYSIS DAY)
     Route: 048
     Dates: start: 20180428
  8. PRECIPITATED CALCIUM CARBONATE [Concomitant]
     Active Substance: CALCIUM CARBONATE
     Indication: HYPERPHOSPHATAEMIA
     Dosage: 1000 MG, BID
     Route: 048
     Dates: start: 20161216
  9. MICARDIS [Concomitant]
     Active Substance: TELMISARTAN
     Indication: HYPERTENSION
     Dosage: DAILY DOSE 10 MG (NOT TAKE ON DIALYSIS DAY, AFTER BREAKFAST)
     Route: 048
     Dates: start: 20161216

REACTIONS (2)
  - Malaise [Unknown]
  - Anaphylactic reaction [Recovered/Resolved]

NARRATIVE: CASE EVENT DATE: 20190330
